FAERS Safety Report 22316402 (Version 3)
Quarter: 2023Q2

REPORT INFORMATION
  Report Type: Report from Study
  Country: ES (occurrence: ES)
  Receive Date: 20230513
  Receipt Date: 20230630
  Transmission Date: 20230721
  Serious: Yes (Other)
  Sender: FDA-Public Use
  Company Number: ES-JAZZ PHARMACEUTICALS-2023-ES-010292

PATIENT
  Age: 3 Year
  Sex: Male

DRUGS (4)
  1. EPIDIOLEX [Suspect]
     Active Substance: CANNABIDIOL
     Indication: Severe myoclonic epilepsy of infancy
     Dosage: 7 MILLIGRAM PER KILOGRAM PER DAY
     Route: 048
  2. VALPROATE [Concomitant]
     Active Substance: VALPROIC ACID
     Indication: Product used for unknown indication
  3. CLOBAZAM [Concomitant]
     Active Substance: CLOBAZAM
     Indication: Product used for unknown indication
  4. FENFLURAMINE [Concomitant]
     Active Substance: FENFLURAMINE
     Indication: Product used for unknown indication

REACTIONS (4)
  - Autism spectrum disorder [Recovering/Resolving]
  - Generalised tonic-clonic seizure [Unknown]
  - Hepatic enzyme increased [Recovered/Resolved]
  - Therapeutic response unexpected [Unknown]
